FAERS Safety Report 18308369 (Version 2)
Quarter: 2020Q3

REPORT INFORMATION
  Report Type: Report from Study
  Country: CA (occurrence: CA)
  Receive Date: 20200924
  Receipt Date: 20200930
  Transmission Date: 20201103
  Serious: Yes (Other)
  Sender: FDA-Public Use
  Company Number: CA-VERTEX PHARMACEUTICALS-2020-018753

PATIENT
  Sex: Male
  Weight: 77 kg

DRUGS (1)
  1. ELEXACAFTOR/TEZACAFTOR/IVACAFTOR AND IVACAFTOR [Suspect]
     Active Substance: ELEXACAFTOR\IVACAFTOR\TEZACAFTOR
     Indication: CYSTIC FIBROSIS
     Dosage: VX?445/TEZ/IVA 2 TABS QAM AND 1 TAB QPM
     Route: 048
     Dates: start: 20200508

REACTIONS (3)
  - Anorectal varices [Not Recovered/Not Resolved]
  - Gastric varices [Not Recovered/Not Resolved]
  - Varices oesophageal [Not Recovered/Not Resolved]

NARRATIVE: CASE EVENT DATE: 20200910
